FAERS Safety Report 4608666-8 (Version None)
Quarter: 2005Q1

REPORT INFORMATION
  Report Type: 
  Country: None (occurrence: None)
  Receive Date: 20050315
  Receipt Date: 20050210
  Transmission Date: 20050727
  Serious: Yes (Disabling)
  Sender: FDA-Public Use
  Company Number: AU-MERCK-0502AUS00119

PATIENT
  Age: 68 Year
  Sex: Male
  Weight: 121 kg

DRUGS (7)
  1. ZETIA [Suspect]
     Indication: HYPERCHOLESTEROLAEMIA
     Route: 048
     Dates: start: 20040914, end: 20041118
  2. ASPIRIN [Concomitant]
     Route: 048
  3. FOSAMAX [Concomitant]
     Indication: OSTEOPOROSIS
     Route: 048
     Dates: start: 20030301
  4. IRBESARTAN [Concomitant]
     Indication: BLOOD PRESSURE
     Route: 048
     Dates: start: 20000101
  5. NAPROXEN [Concomitant]
     Indication: OSTEOARTHRITIS
     Route: 048
     Dates: start: 19900101
  6. PANTOPRAZOLE SODIUM [Concomitant]
     Indication: GASTROOESOPHAGEAL REFLUX DISEASE
     Route: 048
     Dates: start: 20040220
  7. SOTALOL HYDROCHLORIDE [Concomitant]
     Indication: ATRIAL FIBRILLATION
     Route: 048
     Dates: start: 20000101

REACTIONS (3)
  - FATIGUE [None]
  - MALAISE [None]
  - MYALGIA [None]
